FAERS Safety Report 20768938 (Version 1)
Quarter: 2022Q2

REPORT INFORMATION
  Report Type: Spontaneous
  Country: CN (occurrence: CN)
  Receive Date: 20220429
  Receipt Date: 20220429
  Transmission Date: 20220721
  Serious: No
  Sender: FDA-Public Use
  Company Number: CN-LUPIN PHARMACEUTICALS INC.-2022-06198

PATIENT
  Age: 32 Year
  Sex: Female

DRUGS (3)
  1. BUDESONIDE [Suspect]
     Active Substance: BUDESONIDE
     Indication: Oral lichen planus
     Dosage: UNK
     Route: 065
  2. VITAMIN B2 [Suspect]
     Active Substance: RIBOFLAVIN
     Indication: Oral lichen planus
     Dosage: UNK
     Route: 065
  3. CETYLPYRIDINIUM CHLORIDE [Suspect]
     Active Substance: CETYLPYRIDINIUM CHLORIDE
     Indication: Oral lichen planus
     Dosage: UNK
     Route: 065

REACTIONS (2)
  - Drug ineffective for unapproved indication [Unknown]
  - Off label use [Unknown]
